FAERS Safety Report 7657040-9 (Version None)
Quarter: 2011Q3

REPORT INFORMATION
  Report Type: 
  Country: None (occurrence: None)
  Receive Date: 20110804
  Receipt Date: 20110727
  Transmission Date: 20111222
  Serious: Yes (Other)
  Sender: FDA-Public Use
  Company Number: AU-B.I. PHARMACEUTICALS,INC./RIDGEFIELD-2011-BP-19045YA

PATIENT

DRUGS (1)
  1. TAMSULOSIN HCL [Suspect]
     Dates: start: 20101007, end: 20101101

REACTIONS (2)
  - EYELID DISORDER [None]
  - NIGHT BLINDNESS [None]
